FAERS Safety Report 9632550 (Version 4)
Quarter: 2013Q4

REPORT INFORMATION
  Report Type: Report from Study
  Country: US (occurrence: US)
  Receive Date: 20131018
  Receipt Date: 20131122
  Transmission Date: 20140711
  Serious: Yes (Hospitalization, Other)
  Sender: FDA-Public Use
  Company Number: PHHO2013US009110

PATIENT
  Age: 53 Year
  Sex: Male
  Weight: 68.2 kg

DRUGS (12)
  1. BEZ235 [Suspect]
     Indication: NEUROENDOCRINE CARCINOMA METASTATIC
     Dosage: 50 MG, BID
     Route: 048
     Dates: start: 20130709, end: 20130929
  2. AFINITOR [Suspect]
     Indication: NEUROENDOCRINE CARCINOMA METASTATIC
     Dosage: 5 MG, QD
     Route: 048
     Dates: start: 20130709, end: 20130929
  3. OXYCODONE HCL [Suspect]
     Indication: PAIN
     Dosage: 5 MG, PRN
     Dates: start: 20130409
  4. OXYCONTIN [Suspect]
     Indication: PAIN
     Dosage: 10 MG, BID AS NEEDED
     Dates: start: 20130409
  5. MAGNESIUM OXIDE [Concomitant]
     Indication: HYPOMAGNESAEMIA
     Dosage: 400 MG, TID
     Dates: start: 20130503
  6. MULTIVITAMIN [Concomitant]
     Indication: SUPPLEMENTATION THERAPY
     Dosage: 1 DF, QD (SID)
  7. ONDASETRON [Concomitant]
     Indication: NAUSEA
     Dosage: 8 MG, PRN
     Dates: start: 20121102
  8. PAROXETINE HCL [Concomitant]
     Indication: ANXIETY
     Dosage: 30 MG, QD (SID)
  9. SENNA [Concomitant]
     Indication: CONSTIPATION
     Dosage: 8.6 MG (CAPSULE), BID
     Dates: start: 20130522
  10. ZOLPIDEM TARTATE [Concomitant]
     Dosage: 12.5 MG, QD (SID BEDTIME)
     Dates: start: 201303
  11. OMEPRAZOL [Concomitant]
     Indication: DYSPEPSIA
     Dosage: 20 MG, QD (SID)
     Dates: start: 201305
  12. TYLENOL [Concomitant]
     Indication: HEADACHE
     Dosage: 500 MG, PRN
     Dates: start: 201309

REACTIONS (4)
  - Confusional state [Not Recovered/Not Resolved]
  - Nausea [Not Recovered/Not Resolved]
  - Anaemia [Not Recovered/Not Resolved]
  - Pyrexia [Not Recovered/Not Resolved]
